FAERS Safety Report 13710802 (Version 1)
Quarter: 2017Q2

REPORT INFORMATION
  Report Type: Spontaneous
  Country: US (occurrence: US)
  Receive Date: 20170630
  Receipt Date: 20170630
  Transmission Date: 20170830
  Serious: Yes (Hospitalization)
  Sender: FDA-Public Use
  Company Number: None

PATIENT
  Age: 55 Year
  Sex: Female

DRUGS (6)
  1. FISH OIL [Concomitant]
     Active Substance: FISH OIL
  2. LOSARTAN. [Concomitant]
     Active Substance: LOSARTAN
  3. ASPIRIN. [Concomitant]
     Active Substance: ASPIRIN
  4. MULTI-VIT [Concomitant]
     Active Substance: VITAMINS
  5. VITAMIN D3 [Concomitant]
     Active Substance: CHOLECALCIFEROL
  6. GRANIX [Suspect]
     Active Substance: TBO-FILGRASTIM
     Indication: NEUTROPENIA
     Dosage: 300MCG/0.5ML  PFS   1QD X10 DAYS SQ
     Route: 058
     Dates: start: 20170524

REACTIONS (1)
  - Unevaluable event [None]

NARRATIVE: CASE EVENT DATE: 201606
